FAERS Safety Report 6058994-7 (Version None)
Quarter: 2009Q1

REPORT INFORMATION
  Report Type: 
  Country: None (occurrence: None)
  Receive Date: 20090130
  Receipt Date: 20090123
  Transmission Date: 20090719
  Serious: Yes (Death, Hospitalization)
  Sender: FDA-Public Use
  Company Number: A0765757A

PATIENT
  Age: 78 Year
  Sex: Female
  Weight: 84.1 kg

DRUGS (8)
  1. AVANDIA [Suspect]
     Dosage: 8MG PER DAY
     Route: 048
     Dates: start: 20030101, end: 20070101
  2. PAXIL [Concomitant]
  3. PHOSLO [Concomitant]
  4. VITAMIN [Concomitant]
  5. MYSOLINE [Concomitant]
  6. PRIMIDONE [Concomitant]
  7. PREVACID [Concomitant]
  8. VALIUM [Concomitant]

REACTIONS (2)
  - CARDIO-RESPIRATORY ARREST [None]
  - MYOCARDIAL INFARCTION [None]
